FAERS Safety Report 25932027 (Version 1)
Quarter: 2025Q4

REPORT INFORMATION
  Report Type: Spontaneous
  Country: US (occurrence: US)
  Receive Date: 20251016
  Receipt Date: 20251016
  Transmission Date: 20260118
  Serious: Yes (Other)
  Sender: NOVARTIS
  Company Number: US-002147023-NVSC2025US156568

PATIENT
  Sex: Female

DRUGS (1)
  1. KISQALI [Suspect]
     Active Substance: RIBOCICLIB SUCCINATE
     Indication: Breast cancer
     Dosage: 600 MG, QD
     Route: 048
     Dates: start: 20250912, end: 20250928

REACTIONS (4)
  - Electrocardiogram QT prolonged [Recovering/Resolving]
  - Decreased appetite [Recovering/Resolving]
  - Somnolence [Recovering/Resolving]
  - Tremor [Recovering/Resolving]
